FAERS Safety Report 4809394-6 (Version None)
Quarter: 2005Q4

REPORT INFORMATION
  Report Type: 
  Country: None (occurrence: None)
  Receive Date: 20051025
  Receipt Date: 20051018
  Transmission Date: 20060501
  Serious: Yes (Hospitalization)
  Sender: FDA-Public Use
  Company Number: 200518253US

PATIENT
  Sex: Male

DRUGS (5)
  1. LANTUS [Suspect]
     Indication: DIABETES MELLITUS NON-INSULIN-DEPENDENT
     Dosage: DOSE: 18-17; DOSE UNIT: UNITS
     Route: 051
     Dates: start: 20030601
  2. HUMULIN N [Concomitant]
     Dosage: DOSE: UNKNOWN
  3. GLUCOPHAGE [Concomitant]
     Dosage: DOSE: UNKNOWN
  4. AVANDIA [Concomitant]
     Dosage: DOSE: UNKNOWN
     Dates: end: 20050701
  5. CARDIOVASCULAR SYSTEM DRUGS [Concomitant]
     Dosage: DOSE: UNKNOWN

REACTIONS (2)
  - BLOOD GLUCOSE DECREASED [None]
  - TRIPLE VESSEL BYPASS GRAFT [None]
